FAERS Safety Report 7404896-0 (Version None)
Quarter: 2011Q1

REPORT INFORMATION
  Report Type: 
  Country: None (occurrence: None)
  Receive Date: 20110301
  Receipt Date: 20100924
  Transmission Date: 20110831
  Serious: Yes (Other)
  Sender: FDA-Public Use
  Company Number: RB-15833-2010

PATIENT
  Sex: Male

DRUGS (1)
  1. BUPRENORPHINE [Suspect]
     Indication: PRODUCT USED FOR UNKNOWN INDICATION

REACTIONS (6)
  - SUBSTANCE ABUSE [None]
  - NEGLECT OF PERSONAL APPEARANCE [None]
  - DRUG DEPENDENCE [None]
  - ASTHENIA [None]
  - WEIGHT DECREASED [None]
  - ABNORMAL BEHAVIOUR [None]
